FAERS Safety Report 4787073-1 (Version None)
Quarter: 2005Q4

REPORT INFORMATION
  Report Type: 
  Country: None (occurrence: None)
  Receive Date: 20051004
  Receipt Date: 20050929
  Transmission Date: 20060501
  Serious: Yes (Life-Threatening)
  Sender: FDA-Public Use
  Company Number: 2005CG01626

PATIENT
  Age: 16 Year
  Sex: Female

DRUGS (6)
  1. DIPRIVAN [Suspect]
     Indication: GENERAL ANAESTHESIA
     Route: 042
     Dates: start: 20021023, end: 20021023
  2. TRACRIUM [Suspect]
     Indication: GENERAL ANAESTHESIA
     Route: 042
     Dates: start: 20021023, end: 20021023
  3. ULTIVA [Suspect]
     Indication: GENERAL ANAESTHESIA
     Route: 042
     Dates: start: 20021023, end: 20021023
  4. MEFOXIN [Suspect]
     Route: 042
     Dates: start: 20021023, end: 20021023
  5. BETAMETHASONE [Concomitant]
     Indication: ASTHMA
  6. ALBUTEROL SULFATE HFA [Concomitant]
     Indication: ASTHMA

REACTIONS (3)
  - ACUTE PULMONARY OEDEMA [None]
  - HYPOTENSION [None]
  - TACHYCARDIA PAROXYSMAL [None]
